FAERS Safety Report 5382390-9 (Version None)
Quarter: 2007Q3

REPORT INFORMATION
  Report Type: 
  Country: None (occurrence: None)
  Receive Date: 20070709
  Receipt Date: 20070629
  Transmission Date: 20080115
  Serious: Yes (Life-Threatening, Hospitalization)
  Sender: FDA-Public Use
  Company Number: JP-MERCK-0706USA01535

PATIENT
  Age: 88 Year
  Sex: Female
  Weight: 42 kg

DRUGS (10)
  1. COZAAR [Suspect]
     Indication: CARDIAC FAILURE CHRONIC
     Route: 048
     Dates: start: 20070601, end: 20070603
  2. COZAAR [Suspect]
     Indication: MITRAL VALVE INCOMPETENCE
     Route: 048
     Dates: start: 20070601, end: 20070603
  3. ALLOPURINOL [Suspect]
     Indication: HYPERURICAEMIA
     Route: 048
     Dates: start: 20070529, end: 20070603
  4. PEPCID RPD [Suspect]
     Indication: GASTRITIS
     Route: 048
     Dates: end: 20070603
  5. ARICEPT [Concomitant]
     Indication: DEMENTIA
     Route: 048
  6. NATRIX [Concomitant]
     Indication: CARDIAC FAILURE CHRONIC
     Route: 048
     Dates: start: 20070523
  7. ALDACTONE [Concomitant]
     Indication: CARDIAC FAILURE CHRONIC
     Route: 048
     Dates: start: 20070517
  8. PLETAL [Concomitant]
     Indication: SICK SINUS SYNDROME
     Route: 048
     Dates: start: 20070517
  9. LASIX [Concomitant]
     Indication: CARDIAC FAILURE CHRONIC
     Route: 048
     Dates: start: 20070523
  10. LEVOFLOXACIN [Concomitant]
     Indication: URINARY TRACT INFECTION
     Route: 048
     Dates: start: 20070526, end: 20070530

REACTIONS (2)
  - RENAL FAILURE ACUTE [None]
  - TOXIC SKIN ERUPTION [None]
